FAERS Safety Report 17963199 (Version 2)
Quarter: 2020Q3

REPORT INFORMATION
  Report Type: Spontaneous
  Country: AU (occurrence: AU)
  Receive Date: 20200630
  Receipt Date: 20200715
  Transmission Date: 20201103
  Serious: Yes (Other)
  Sender: FDA-Public Use
  Company Number: AU-UCBSA-2020025020

PATIENT
  Sex: Female

DRUGS (5)
  1. LEVETIRACETAM. [Suspect]
     Active Substance: LEVETIRACETAM
     Indication: OFF LABEL USE
     Dosage: UNK
  2. SIROLIMUS. [Suspect]
     Active Substance: SIROLIMUS
     Dosage: 0.125 MILLIGRAM, ONCE DAILY (QD)
  3. SIROLIMUS. [Suspect]
     Active Substance: SIROLIMUS
     Indication: RHABDOMYOMA
     Dosage: 0.25 MILLIGRAM, ONCE DAILY (QD)
  4. ALPROSTADIL. [Concomitant]
     Active Substance: ALPROSTADIL
     Indication: LEFT VENTRICLE OUTFLOW TRACT OBSTRUCTION
     Dosage: UNK
  5. LEVETIRACETAM. [Suspect]
     Active Substance: LEVETIRACETAM
     Indication: TUBEROUS SCLEROSIS COMPLEX

REACTIONS (2)
  - Off label use [Unknown]
  - Neutropenia [Unknown]
